FAERS Safety Report 9153834 (Version 2)
Quarter: 2013Q1

REPORT INFORMATION
  Report Type: Spontaneous
  Country: US (occurrence: None)
  Receive Date: 20130307
  Receipt Date: 20130311
  Transmission Date: 20140127
  Serious: Yes (Death, Hospitalization)
  Sender: FDA-Public Use
  Company Number: TPA2013A01813

PATIENT
  Sex: Male

DRUGS (2)
  1. PIOGLITAZONE [Suspect]
     Indication: TYPE 2 DIABETES MELLITUS
     Route: 048
  2. PLACEBO (PLACEBO) [Suspect]
     Indication: TYPE 2 DIABETES MELLITUS
     Route: 058
     Dates: start: 20090711, end: 20110921

REACTIONS (2)
  - Neoplasm malignant [None]
  - Neuroendocrine carcinoma metastatic [None]
